FAERS Safety Report 23248368 (Version 1)
Quarter: 2023Q4

REPORT INFORMATION
  Report Type: Report from Study
  Country: PE (occurrence: PE)
  Receive Date: 20231201
  Receipt Date: 20231201
  Transmission Date: 20240109
  Serious: Yes (Death)
  Sender: FDA-Public Use
  Company Number: PE-Merck Healthcare KGaA-2023491383

PATIENT

DRUGS (1)
  1. SAIZEN [Suspect]
     Active Substance: SOMATROPIN
     Indication: Diabetic foot
     Dates: start: 20230306

REACTIONS (2)
  - Septic shock [Fatal]
  - Off label use [Unknown]
